FAERS Safety Report 17420038 (Version 2)
Quarter: 2020Q3

REPORT INFORMATION
  Report Type: Spontaneous
  Country: US (occurrence: US)
  Receive Date: 20200214
  Receipt Date: 20200729
  Transmission Date: 20201102
  Serious: No
  Sender: FDA-Public Use
  Company Number: US-PFIZER INC-2020064354

PATIENT
  Age: 48 Year
  Sex: Female

DRUGS (1)
  1. GENOTROPIN MQ [Suspect]
     Active Substance: SOMATROPIN
     Indication: CRANIOCEREBRAL INJURY
     Dosage: 0.4 MG, DAILY

REACTIONS (2)
  - Insulin-like growth factor increased [Unknown]
  - Malaise [Unknown]

NARRATIVE: CASE EVENT DATE: 20191017
